FAERS Safety Report 14976728 (Version 2)
Quarter: 2018Q4

REPORT INFORMATION
  Report Type: Spontaneous
  Country: US (occurrence: US)
  Receive Date: 20180605
  Receipt Date: 20181018
  Transmission Date: 20190204
  Serious: No
  Sender: FDA-Public Use
  Company Number: US-009507513-1805USA014405

PATIENT
  Sex: Female

DRUGS (1)
  1. NUVARING [Suspect]
     Active Substance: ETHINYL ESTRADIOL\ETONOGESTREL
     Dosage: 1 RING EVERY 4 WEEKS
     Route: 067

REACTIONS (3)
  - Product storage error [Unknown]
  - Incorrect product administration duration [Unknown]
  - No adverse event [Unknown]
